FAERS Safety Report 13678740 (Version 3)
Quarter: 2017Q3

REPORT INFORMATION
  Report Type: Spontaneous
  Country: GB (occurrence: GB)
  Receive Date: 20170622
  Receipt Date: 20170828
  Transmission Date: 20171127
  Serious: Yes (Hospitalization, Other)
  Sender: FDA-Public Use
  Company Number: GB-PFIZER INC-2017267722

PATIENT
  Age: 55 Year
  Sex: Male
  Weight: 65 kg

DRUGS (7)
  1. FOLIC ACID. [Concomitant]
     Active Substance: FOLIC ACID
     Indication: DRUG THERAPY
     Dosage: 5 MG, 1X/DAY
  2. ELTROMBOPAG [Concomitant]
     Active Substance: ELTROMBOPAG
     Indication: PLATELET COUNT DECREASED
     Dosage: 50 MG, 1X/DAY
  3. AMOXICILLIN. [Concomitant]
     Active Substance: AMOXICILLIN
     Indication: PROPHYLAXIS
     Dosage: 500 MG, 1X/DAY
  4. WATER FOR INJECTION [Suspect]
     Active Substance: WATER
     Indication: MEDICATION DILUTION
     Dosage: INFUSED OVER 10 HOURS (5 IN 1 WK)
     Route: 058
     Dates: start: 20170520, end: 20170604
  5. SODIUM CHLORIDE KABI [Suspect]
     Active Substance: SODIUM CHLORIDE
     Indication: MEDICATION DILUTION
     Dosage: INFUSED OVER 10 HOURS (46 ML,5 IN 1 WK)
     Route: 058
     Dates: start: 20170520, end: 20170604
  6. ALLOPURINOL /00003302/ [Concomitant]
     Active Substance: ALLOPURINOL
     Indication: GOUT
     Dosage: 300 MG, 1X/DAY
  7. DEFEROXAMINE MESILATE [Suspect]
     Active Substance: DEFEROXAMINE MESYLATE
     Indication: IRON OVERLOAD
     Dosage: 2000 MG, INFUSED OVER 10 HOURS (2 GM,5 IN 1 WK)
     Route: 058
     Dates: start: 20170520, end: 20170604

REACTIONS (5)
  - Visual impairment [Recovering/Resolving]
  - Maculopathy [Recovering/Resolving]
  - Retinal oedema [Recovering/Resolving]
  - Retinal disorder [Recovering/Resolving]
  - Immune thrombocytopenic purpura [Unknown]

NARRATIVE: CASE EVENT DATE: 20170604
